FAERS Safety Report 7727143-9 (Version None)
Quarter: 2011Q3

REPORT INFORMATION
  Report Type: 
  Country: None (occurrence: None)
  Receive Date: 20110902
  Receipt Date: 20110803
  Transmission Date: 20111222
  Serious: Yes (Other)
  Sender: FDA-Public Use
  Company Number: SG-BAYER-2011-068950

PATIENT
  Age: 40 Year
  Sex: Male

DRUGS (2)
  1. ASPIRIN [Suspect]
  2. NAPROXEN SODIUM [Suspect]

REACTIONS (1)
  - URTICARIA [None]
